APPROVED DRUG PRODUCT: MONOCID
Active Ingredient: CEFONICID SODIUM
Strength: EQ 10GM BASE/VIAL
Dosage Form/Route: INJECTABLE;INJECTION
Application: N050579 | Product #004
Applicant: GLAXOSMITHKLINE
Approved: May 23, 1984 | RLD: No | RS: No | Type: DISCN